FAERS Safety Report 22088398 (Version 2)
Quarter: 2023Q1

REPORT INFORMATION
  Report Type: Spontaneous
  Country: US (occurrence: US)
  Receive Date: 20230313
  Receipt Date: 20230315
  Transmission Date: 20230417
  Serious: Yes (Death, Hospitalization)
  Sender: FDA-Public Use
  Company Number: US-UCBSA-2023012513

PATIENT
  Age: 67 Year
  Sex: Female

DRUGS (2)
  1. LEVETIRACETAM [Suspect]
     Active Substance: LEVETIRACETAM
     Indication: Product used for unknown indication
     Dosage: 7.7 MICROGRAM PER MILLIGRAM IN BLOOD (UNSPECIFIED)
  2. LAMOTRIGINE [Concomitant]
     Active Substance: LAMOTRIGINE
     Indication: Product used for unknown indication
     Dosage: 73 MICROGRAM PER MILLIGRAM,IN BLOOD (UNSPECIFIED)

REACTIONS (3)
  - Cardio-respiratory arrest [Fatal]
  - Suicidal ideation [Fatal]
  - Toxicity to various agents [Fatal]
